FAERS Safety Report 4991618-6 (Version None)
Quarter: 2006Q2

REPORT INFORMATION
  Report Type: 
  Country: None (occurrence: None)
  Receive Date: 20060502
  Receipt Date: 20060418
  Transmission Date: 20061013
  Serious: Yes (Hospitalization)
  Sender: FDA-Public Use
  Company Number: T200600251

PATIENT
  Age: 74 Year
  Sex: Female
  Weight: 78 kg

DRUGS (8)
  1. PAMELOR [Suspect]
     Indication: DEPRESSION
     Dosage: 25 MG, QD, ORAL; SEE IMAGE
     Route: 048
     Dates: start: 20060131, end: 20060201
  2. PAMELOR [Suspect]
     Indication: DEPRESSION
     Dosage: 25 MG, QD, ORAL; SEE IMAGE
     Route: 048
     Dates: start: 20060301, end: 20060328
  3. PAMELOR [Suspect]
     Indication: DEPRESSION
     Dosage: 25 MG, QD, ORAL; SEE IMAGE
     Route: 048
     Dates: start: 20060329, end: 20060416
  4. PAMELOR [Suspect]
     Indication: DEPRESSION
     Dosage: 25 MG, QD, ORAL; SEE IMAGE
     Route: 048
     Dates: start: 20060416
  5. DIOVAN /01319601/ (VALSARTAN) [Concomitant]
  6. METOPROLOL (METOPROLOL) SOLUTION [Concomitant]
  7. LORTAB /00607101/ (HYDROCODONE BITARTRATE, PARACETAMOL) [Concomitant]
  8. ANALGESICS [Concomitant]

REACTIONS (18)
  - ANXIETY [None]
  - ASTHENIA [None]
  - BLOOD CHLORIDE DECREASED [None]
  - BLOOD POTASSIUM DECREASED [None]
  - BLOOD PRESSURE FLUCTUATION [None]
  - CHILLS [None]
  - DEHYDRATION [None]
  - DIFFICULTY IN WALKING [None]
  - DRUG INEFFECTIVE [None]
  - EYE PAIN [None]
  - FALL [None]
  - GAIT DISTURBANCE [None]
  - HEADACHE [None]
  - HEART RATE INCREASED [None]
  - PALPITATIONS [None]
  - PANIC ATTACK [None]
  - PYREXIA [None]
  - VISUAL DISTURBANCE [None]
